FAERS Safety Report 17453803 (Version 5)
Quarter: 2024Q4

REPORT INFORMATION
  Report Type: Spontaneous
  Country: IT (occurrence: IT)
  Receive Date: 20200224
  Receipt Date: 20241230
  Transmission Date: 20250114
  Serious: Yes (Other)
  Sender: MYLAN
  Company Number: IT-PFM-2020-01027

PATIENT
  Age: 15 Year
  Sex: Female
  Weight: 60 kg

DRUGS (7)
  1. ZOLOFT [Suspect]
     Active Substance: SERTRALINE HYDROCHLORIDE
     Indication: Product used for unknown indication
     Dosage: 15 DF, SINGLE INTAKE
     Route: 048
     Dates: start: 20200124, end: 20200124
  2. DOXYCYCLINE [Suspect]
     Active Substance: DOXYCYCLINE
     Indication: Product used for unknown indication
     Dosage: 10 DF, SINGLE INTAKE
     Route: 048
     Dates: start: 20200124, end: 20200124
  3. COCODAMOL [Suspect]
     Active Substance: ACETAMINOPHEN\CODEINE PHOSPHATE
     Indication: Product used for unknown indication
     Dosage: 8 DF, SINGLE INTAKE
     Route: 048
     Dates: start: 20200124, end: 20200124
  4. AUGMENTIN [Suspect]
     Active Substance: AMOXICILLIN\CLAVULANATE POTASSIUM
     Indication: Product used for unknown indication
     Dosage: 2 DF, SINGLE INTAKE
     Route: 048
     Dates: start: 20200124, end: 20200124
  5. ACETAMINOPHEN\IBUPROFEN [Suspect]
     Active Substance: ACETAMINOPHEN\IBUPROFEN
     Indication: Product used for unknown indication
     Dosage: 7 DF, SINGLE INTAKE
     Route: 048
     Dates: start: 20200124, end: 20200124
  6. FERROUS SULFATE [Suspect]
     Active Substance: FERROUS SULFATE
     Indication: Product used for unknown indication
     Dosage: 10 DF, SINGLE INTAKE
     Route: 048
     Dates: start: 20200124, end: 20200124
  7. ZOLPIDEM TARTRATE [Suspect]
     Active Substance: ZOLPIDEM TARTRATE
     Indication: Product used for unknown indication
     Dosage: 7 DF, SINGLE INTAKE
     Route: 048
     Dates: start: 20200124, end: 20200124

REACTIONS (3)
  - Intentional self-injury [Unknown]
  - Vomiting [Unknown]
  - Intentional overdose [Unknown]

NARRATIVE: CASE EVENT DATE: 20200124
